FAERS Safety Report 20115953 (Version 2)
Quarter: 2022Q2

REPORT INFORMATION
  Report Type: Spontaneous
  Country: FR (occurrence: None)
  Receive Date: 20211126
  Receipt Date: 20220405
  Transmission Date: 20220721
  Serious: Yes (Hospitalization)
  Sender: FDA-Public Use
  Company Number: FR-Orion Corporation ORION PHARMA-TREX2021-0110

PATIENT
  Age: 67 Year
  Sex: Female

DRUGS (3)
  1. METHOTREXATE [Suspect]
     Active Substance: METHOTREXATE
     Indication: Rheumatoid arthritis
     Route: 048
     Dates: end: 202110
  2. MODERNA COVID-19 VACCINE [Suspect]
     Active Substance: ELASOMERAN
     Indication: COVID-19 immunisation
     Dosage: 0.20 MG/ML, COVID-19 MRNA VACCINE (DOSE 1)
     Route: 030
     Dates: start: 20210503, end: 20210503
  3. MODERNA COVID-19 VACCINE [Suspect]
     Active Substance: ELASOMERAN
     Dosage: 0.20 MG/ML, COVID-19 MRNA VACCINE (DOSE 2)
     Route: 030
     Dates: start: 20210612, end: 20210612

REACTIONS (1)
  - Vaccination failure [Recovering/Resolving]

NARRATIVE: CASE EVENT DATE: 20211027
